FAERS Safety Report 18013707 (Version 2)
Quarter: 2021Q1

REPORT INFORMATION
  Report Type: Report from Study
  Country: US (occurrence: US)
  Receive Date: 20200713
  Receipt Date: 20210107
  Transmission Date: 20210419
  Serious: No
  Sender: FDA-Public Use
  Company Number: NVSC2020US194332

PATIENT
  Age: 10 Year
  Sex: Male

DRUGS (2)
  1. ILARIS [Suspect]
     Active Substance: CANAKINUMAB
     Indication: IMMUNE SYSTEM DISORDER
     Dosage: 120 MG, (EVERY 4 WEEKS)
     Route: 058
  2. ILARIS [Suspect]
     Active Substance: CANAKINUMAB
     Dosage: 127.5 MG, (EVERY 4 WEEKS)
     Route: 058
     Dates: start: 20190405

REACTIONS (2)
  - Incorrect dose administered [Unknown]
  - Pyrexia [Unknown]

NARRATIVE: CASE EVENT DATE: 20200630
